FAERS Safety Report 6424960-2 (Version None)
Quarter: 2009Q4

REPORT INFORMATION
  Report Type: 
  Country: None (occurrence: None)
  Receive Date: 20091103
  Receipt Date: 20091029
  Transmission Date: 20100525
  Serious: Yes (Hospitalization)
  Sender: FDA-Public Use
  Company Number: US-ELI_LILLY_AND_COMPANY-US200910007538

PATIENT
  Sex: Female
  Weight: 114.29 kg

DRUGS (13)
  1. BYETTA [Suspect]
     Indication: TYPE 2 DIABETES MELLITUS
     Dosage: 5 UG, 2/D
     Route: 058
     Dates: start: 20080101, end: 20080101
  2. BYETTA [Suspect]
     Dosage: 10 UG, 2/D
     Dates: start: 20080101
  3. GLYBURIDE [Concomitant]
     Indication: TYPE 2 DIABETES MELLITUS
     Dosage: 5 MG, 2/D
     Route: 048
     Dates: start: 20060101
  4. LOMOTIL [Concomitant]
  5. ZESTRIL [Concomitant]
  6. COREG [Concomitant]
     Indication: CARDIOMYOPATHY
  7. PROZAC [Concomitant]
  8. LASIX [Concomitant]
  9. DARVOCET [Concomitant]
     Indication: NEUROPATHY PERIPHERAL
     Dosage: UNK, EACH EVENING
  10. TRAZODONE [Concomitant]
  11. PRAVACHOL [Concomitant]
     Indication: BLOOD TRIGLYCERIDES INCREASED
     Dates: start: 20030101
  12. POTASSIUM CHLORIDE [Concomitant]
  13. VITAMIN B-12 [Concomitant]
     Indication: SUPPLEMENTATION THERAPY

REACTIONS (5)
  - DYSPNOEA [None]
  - INCORRECT DOSE ADMINISTERED [None]
  - MEMORY IMPAIRMENT [None]
  - PYREXIA [None]
  - UPPER RESPIRATORY TRACT INFECTION [None]
